FAERS Safety Report 19943645 (Version 9)
Quarter: 2024Q2

REPORT INFORMATION
  Report Type: Other
  Country: IT (occurrence: None)
  Receive Date: 20211012
  Receipt Date: 20240401
  Transmission Date: 20240716
  Serious: Yes (Other)
  Sender: FDA-Public Use
  Company Number: IT-ROCHE-2839639

PATIENT
  Age: 77 Year
  Sex: Female

DRUGS (1)
  1. OBINUTUZUMAB [Suspect]
     Active Substance: OBINUTUZUMAB
     Indication: Follicular lymphoma
     Dosage: INDUCTION PHASE: 1000 MILLIGRAM (MG) INTRAVENOUSLY (IV) ON DAY 1, 8, 15 OF CYCLE 1 AN DAY 1 OF CYCLE
     Route: 042
     Dates: start: 20200806

REACTIONS (7)
  - Neutropenia [Recovered/Resolved]
  - Interstitial lung disease [Recovered/Resolved]
  - Arthralgia [Recovered/Resolved]
  - Pruritus [Recovered/Resolved]
  - Asthenia [Recovered/Resolved]
  - Off label use [Unknown]
  - Blood potassium increased [Recovered/Resolved]

NARRATIVE: CASE EVENT DATE: 20201007
